FAERS Safety Report 6328436-2 (Version None)
Quarter: 2009Q3

REPORT INFORMATION
  Report Type: 
  Country: None (occurrence: None)
  Receive Date: 20090825
  Receipt Date: 20090323
  Transmission Date: 20100115
  Serious: No
  Sender: FDA-Public Use
  Company Number: US-ABBOTT-09P-163-0564179-00

PATIENT
  Sex: Female
  Weight: 77.18 kg

DRUGS (4)
  1. SYNTHROID [Suspect]
     Indication: BASEDOW'S DISEASE
     Route: 048
     Dates: start: 19980101
  2. SYNTHROID [Suspect]
     Route: 048
     Dates: start: 20070101
  3. SYNTHROID [Suspect]
     Route: 048
  4. ALLEGRA [Concomitant]
     Indication: URTICARIA

REACTIONS (17)
  - ALOPECIA [None]
  - COORDINATION ABNORMAL [None]
  - EMOTIONAL DISORDER [None]
  - FATIGUE [None]
  - LACRIMATION INCREASED [None]
  - LOSS OF LIBIDO [None]
  - MUSCLE DISORDER [None]
  - MUSCLE TIGHTNESS [None]
  - OEDEMA PERIPHERAL [None]
  - PAIN OF SKIN [None]
  - PRURITUS [None]
  - PSYCHOMOTOR HYPERACTIVITY [None]
  - SLEEP DISORDER [None]
  - STRABISMUS [None]
  - SWELLING FACE [None]
  - VISION BLURRED [None]
  - WEIGHT INCREASED [None]
